FAERS Safety Report 19567932 (Version 1)
Quarter: 2021Q3

REPORT INFORMATION
  Report Type: Spontaneous
  Country: JP (occurrence: JP)
  Receive Date: 20210715
  Receipt Date: 20210715
  Transmission Date: 20211014
  Serious: Yes (Other)
  Sender: FDA-Public Use
  Company Number: JP-SEATTLE GENETICS-2020SGN05792

PATIENT
  Age: 87 Year
  Sex: Male
  Weight: 67.6 kg

DRUGS (27)
  1. ADCETRIS [Suspect]
     Active Substance: BRENTUXIMAB VEDOTIN
     Indication: PERIPHERAL T-CELL LYMPHOMA UNSPECIFIED
     Dosage: 100 MILLIGRAM
     Route: 041
     Dates: start: 20201112
  2. FUROSEMIDE. [Concomitant]
     Active Substance: FUROSEMIDE
     Dosage: 20 MILLIGRAM
     Route: 042
     Dates: start: 20201113
  3. TAKEPRON [Concomitant]
     Active Substance: LANSOPRAZOLE
     Dosage: UNK
     Route: 042
     Dates: start: 20201111
  4. ENDOXAN [Suspect]
     Active Substance: CYCLOPHOSPHAMIDE
     Indication: CHEMOTHERAPY
     Dosage: 1100 MILLIGRAM
     Route: 041
     Dates: start: 20201112
  5. ELNEOPA NF NO.2 [Concomitant]
     Active Substance: AMINO ACIDS\DEXTROSE\ELECTROLYTES NOS\MINERALS\VITAMINS
     Dosage: 1000 MILLILITER
     Route: 042
     Dates: start: 20201116
  6. HISHIPHAGEN COMBINATION [Concomitant]
     Dosage: 60 MILLILITER
     Route: 041
     Dates: start: 20201118
  7. BORRAZA G [Concomitant]
     Active Substance: LIDOCAINE\TRIBENOSIDE
     Dosage: UNK
     Route: 065
     Dates: start: 20201114
  8. MAGMITT [Concomitant]
     Active Substance: MAGNESIUM OXIDE
     Dosage: 330 MILLIGRAM, TID
     Route: 065
     Dates: start: 20201111
  9. ALLOID G [Concomitant]
     Active Substance: SODIUM ALGINATE
     Dosage: 20 MILLILITER, TID
     Route: 065
     Dates: start: 20201111
  10. KAYTWO N [Concomitant]
     Active Substance: MENATETRENONE
     Dosage: 10 MILLIGRAM
     Route: 041
     Dates: start: 20201111
  11. PREDONINE [Suspect]
     Active Substance: PREDNISOLONE
     Indication: PRODUCT USED FOR UNKNOWN INDICATION
     Dosage: 100 MILLIGRAM
     Route: 041
     Dates: start: 20201112
  12. SOLITA?T3 [Concomitant]
     Active Substance: POTASSIUM CHLORIDE\SODIUM CHLORIDE\SODIUM LACTATE
     Dosage: 500 MILLILITER
     Route: 041
     Dates: start: 20201112
  13. ELNEOPA NF NO.1 [Concomitant]
     Dosage: 1000 MILLILITER
     Route: 042
     Dates: start: 20201111
  14. CARBAZOCHROME SODIUM SULFONATE [Concomitant]
     Active Substance: CARBAZOCHROME SODIUM SULFONATE
     Dosage: 50 MILLIGRAM
     Route: 042
     Dates: start: 20201112
  15. AZULENE [SODIUM GUALENATE HYDRATE] [Concomitant]
     Dosage: UNK
     Route: 065
     Dates: start: 20201111
  16. URSODEOXYCHOLIC ACID [Concomitant]
     Active Substance: URSODIOL
     Dosage: UNK
     Route: 065
     Dates: start: 20201111
  17. PROCANIN [Concomitant]
     Dosage: 50 MILLIGRAM
     Route: 058
     Dates: start: 20201111
  18. HUMULIN R [Concomitant]
     Active Substance: INSULIN HUMAN
     Dosage: UNK
     Route: 042
     Dates: start: 20201111
  19. DOXORUBICIN HYDROCHLORIDE. [Suspect]
     Active Substance: DOXORUBICIN HYDROCHLORIDE
     Indication: CHEMOTHERAPY
     Dosage: 70 MILLIGRAM
     Route: 041
     Dates: start: 20201112
  20. FILGRASTIM [Concomitant]
     Active Substance: FILGRASTIM
     Dosage: 75 MICROGRAM
     Route: 058
     Dates: start: 20201116
  21. BIOFERMIN R [Concomitant]
     Active Substance: DIETARY SUPPLEMENT\PROBIOTICS
     Dosage: UNK
     Route: 065
     Dates: start: 20201111
  22. UBIDECARENONE. [Concomitant]
     Active Substance: UBIDECARENONE
     Dosage: UNK
     Route: 065
     Dates: start: 20201111
  23. GRANISETRON [GRANISETRON HYDROCHLORIDE] [Concomitant]
     Active Substance: GRANISETRON HYDROCHLORIDE
     Dosage: 3 MILLIGRAM
     Route: 041
     Dates: start: 20201112
  24. HUMULIN N [Concomitant]
     Active Substance: INSULIN HUMAN
     Dosage: 20 INTERNATIONAL UNIT
     Route: 058
     Dates: start: 20201112
  25. NICO [Concomitant]
     Dosage: UNK
     Route: 065
     Dates: start: 20201111
  26. APREPITANT. [Concomitant]
     Active Substance: APREPITANT
     Dosage: 1 DOSAGE FORM
     Route: 048
     Dates: start: 20201112
  27. HEPARIN NA LOCK [Concomitant]
     Active Substance: HEPARIN SODIUM
     Dosage: UNK
     Route: 042
     Dates: start: 20201111

REACTIONS (4)
  - Condition aggravated [Recovered/Resolved]
  - Diarrhoea [Recovered/Resolved]
  - Neutropenic colitis [Recovered/Resolved]
  - Arrhythmia [Recovered/Resolved]

NARRATIVE: CASE EVENT DATE: 20201118
